FAERS Safety Report 22635524 (Version 1)
Quarter: 2023Q2

REPORT INFORMATION
  Report Type: Spontaneous
  Country: US (occurrence: US)
  Receive Date: 20230623
  Receipt Date: 20230623
  Transmission Date: 20230722
  Serious: Yes (Other)
  Sender: FDA-Public Use
  Company Number: US-ENDO PHARMACEUTICALS INC-2023-003169

PATIENT
  Sex: Female

DRUGS (3)
  1. VASOSTRICT [Suspect]
     Active Substance: VASOPRESSIN
     Indication: Hypotension
     Dosage: 0.04 U/KG/HR, INFUSION
     Route: 041
  2. DOPAMINE [Concomitant]
     Active Substance: DOPAMINE HYDROCHLORIDE
     Indication: Hypotension
     Dosage: 15 MCG/KG/MIN, INFUSION
     Route: 042
  3. EPINEPHRINE [Concomitant]
     Active Substance: EPINEPHRINE
     Indication: Resuscitation
     Dosage: UNK UNKNOWN, UNKNOWN (MULTIPLE DOSES)
     Route: 065

REACTIONS (2)
  - Fluid retention [Unknown]
  - Hyponatraemia [Unknown]
